FAERS Safety Report 15485009 (Version 1)
Quarter: 2018Q4

REPORT INFORMATION
  Report Type: Spontaneous
  Country: US (occurrence: US)
  Receive Date: 20181010
  Receipt Date: 20181010
  Transmission Date: 20190205
  Serious: No
  Sender: FDA-Public Use
  Company Number: US-ROCHE-2101519

PATIENT
  Sex: Female

DRUGS (1)
  1. ESBRIET [Suspect]
     Active Substance: PIRFENIDONE
     Indication: PRODUCT USED FOR UNKNOWN INDICATION
     Dosage: 3 TABLETS, 3 TIMES PER DAY, 9 TABLETS TOTAL ;ONGOING: NO
     Route: 065

REACTIONS (2)
  - Dysgeusia [Unknown]
  - Parosmia [Unknown]

NARRATIVE: CASE EVENT DATE: 2018
